FAERS Safety Report 7679575-5 (Version None)
Quarter: 2011Q3

REPORT INFORMATION
  Report Type: 
  Country: None (occurrence: None)
  Receive Date: 20110812
  Receipt Date: 20110810
  Transmission Date: 20111222
  Serious: Yes (Other)
  Sender: FDA-Public Use
  Company Number: NL-BRISTOL-MYERS SQUIBB COMPANY-15951106

PATIENT
  Sex: Male

DRUGS (1)
  1. MITOMYCIN [Suspect]
     Indication: EYE OPERATION COMPLICATION
     Dosage: MITOMYCIN INJECTION(MITOMYCIN C)
     Route: 031
     Dates: start: 20090605, end: 20090605

REACTIONS (3)
  - INCORRECT ROUTE OF DRUG ADMINISTRATION [None]
  - VISUAL ACUITY REDUCED [None]
  - MEDICATION ERROR [None]
